FAERS Safety Report 10877277 (Version 2)
Quarter: 2015Q2

REPORT INFORMATION
  Report Type: Spontaneous
  Country: US (occurrence: US)
  Receive Date: 20150302
  Receipt Date: 20150402
  Transmission Date: 20150821
  Serious: Yes (Other)
  Sender: FDA-Public Use
  Company Number: US-BAYER-2015-026980

PATIENT
  Age: 41 Year
  Sex: Female

DRUGS (1)
  1. MIRENA [Suspect]
     Active Substance: LEVONORGESTREL
     Dosage: 20 MCG/24HR, CONT
     Route: 015
     Dates: start: 20120720, end: 20150205

REACTIONS (6)
  - Expired device used [None]
  - Breast cancer female [None]
  - Embedded device [None]
  - Device breakage [None]
  - Device difficult to use [None]
  - Complication of device removal [None]

NARRATIVE: CASE EVENT DATE: 20120720
